FAERS Safety Report 8091587-9 (Version None)
Quarter: 2012Q1

REPORT INFORMATION
  Report Type: 
  Country: None (occurrence: None)
  Receive Date: 20120131
  Receipt Date: 20120125
  Transmission Date: 20120608
  Serious: No
  Sender: FDA-Public Use
  Company Number: US-PFIZER INC-2012021063

PATIENT
  Sex: Female
  Weight: 65.76 kg

DRUGS (2)
  1. NEXIUM [Concomitant]
     Dosage: UNK
  2. IBUPROFEN (ADVIL) [Suspect]
     Indication: BACK PAIN
     Dosage: TWO TABLETS OF 200MG ONCE A DAY
     Route: 048
     Dates: start: 20120108

REACTIONS (1)
  - DRUG SCREEN FALSE POSITIVE [None]
